FAERS Safety Report 5199436-3 (Version None)
Quarter: 2006Q4

REPORT INFORMATION
  Report Type: 
  Country: None (occurrence: None)
  Receive Date: 20061016
  Receipt Date: 20060712
  Transmission Date: 20070319
  Serious: No
  Sender: FDA-Public Use
  Company Number: 2006SP002671

PATIENT
  Age: 86 Year
  Sex: Female
  Weight: 90.7194 kg

DRUGS (12)
  1. LUNESTA [Suspect]
     Indication: INSOMNIA
     Dosage: 1 MG;1X;ORAL
     Route: 048
     Dates: start: 20060616, end: 20060616
  2. PLAVIX [Concomitant]
  3. SPIRONOLACTONE [Concomitant]
  4. ALLOPURINOL SODIUM [Concomitant]
  5. ATORVASTATIN CALCIUM [Concomitant]
  6. FUROSEMIDE [Concomitant]
  7. OMEPRAZOLE [Concomitant]
  8. LEVOXYL [Concomitant]
  9. IMDUR [Concomitant]
  10. OXYBUTYNIN CHLORIDE [Concomitant]
  11. WARFARIN SODIUM [Concomitant]
  12. TYLENOL EXTRA-STRENGTH [Concomitant]

REACTIONS (3)
  - BALANCE DISORDER [None]
  - VERTIGO [None]
  - VISUAL DISTURBANCE [None]
